FAERS Safety Report 14366939 (Version 2)
Quarter: 2018Q1

REPORT INFORMATION
  Report Type: Report from Study
  Country: US (occurrence: US)
  Receive Date: 20180109
  Receipt Date: 20180205
  Transmission Date: 20180509
  Serious: Yes (Hospitalization)
  Sender: FDA-Public Use
  Company Number: US-BAYER-2017-251661

PATIENT
  Age: 49 Year
  Sex: Male

DRUGS (1)
  1. STIVARGA [Suspect]
     Active Substance: REGORAFENIB
     Indication: GASTROINTESTINAL STROMAL TUMOUR
     Dosage: DAILY DOSE 120 MG
     Route: 048
     Dates: start: 20171223, end: 20180113

REACTIONS (7)
  - Renal disorder [None]
  - Urinary tract infection [None]
  - Internal haemorrhage [None]
  - Off label use [None]
  - Dry skin [None]
  - Intestinal ischaemia [None]
  - Sepsis [None]

NARRATIVE: CASE EVENT DATE: 201712
